FAERS Safety Report 9492871 (Version 1)
Quarter: 2013Q3

REPORT INFORMATION
  Report Type: Spontaneous
  Country: US (occurrence: US)
  Receive Date: 20130901
  Receipt Date: 20130901
  Transmission Date: 20140515
  Serious: No
  Sender: FDA-Public Use
  Company Number: US-009507513-1308USA011985

PATIENT
  Age: 74 Year
  Sex: Male

DRUGS (1)
  1. DULERA [Suspect]
     Indication: ASTHMA
     Dosage: 200/5MCG; 2 PUFFS IN THE AM AND 2 PUFFS IN THE PM
     Route: 055
     Dates: start: 201303, end: 20130814

REACTIONS (1)
  - Chest pain [Not Recovered/Not Resolved]
